FAERS Safety Report 4576736-9 (Version None)
Quarter: 2005Q1

REPORT INFORMATION
  Report Type: 
  Country: None (occurrence: None)
  Receive Date: 20050207
  Receipt Date: 20040603
  Transmission Date: 20050727
  Serious: Yes (Hospitalization)
  Sender: FDA-Public Use
  Company Number: 2004-BP-04360BP

PATIENT
  Age: 41 Year
  Sex: Male
  Weight: 65.8 kg

DRUGS (24)
  1. TIPRANAVIR/RITONAVIR CAPSULES [Suspect]
     Indication: HIV INFECTION
     Dosage: TPV/R 1000MG/400MG (STRENGTH:  200/100MG), PO
     Route: 048
     Dates: start: 20030818
  2. ELAVIL [Suspect]
     Dosage: 50 MG, PO
     Route: 048
  3. ATIVAN [Suspect]
     Indication: ANXIETY
     Dosage: 0.5 MG (3 IN 1 D), PO
     Route: 048
  4. OXYCODONE (OXYCODONE) [Suspect]
     Dosage: 10 MG (1 IN 4 HR), PO
     Route: 048
  5. VASOTEC [Suspect]
     Dosage: 5 MG (1 IN 1 D), PO
     Route: 048
  6. METHADON HCL TAB [Suspect]
     Dosage: 20 MG (1 IM 8 HR), PO
     Route: 048
  7. LOPRESSOR [Suspect]
     Dosage: 12.5 MG (2 IN 1 D), PO
     Route: 048
  8. FUZEON [Concomitant]
  9. LAMIVUDINE (LAMIVUDINE) [Concomitant]
  10. FOSAMAX [Concomitant]
  11. COLACE (DOCUSATE SODIUM) [Concomitant]
  12. DIFLUCAN [Concomitant]
  13. KEPPRA [Concomitant]
  14. MULTI-VITAMIN [Concomitant]
  15. PROTONIX [Concomitant]
  16. PAXIL [Concomitant]
  17. SENOKOT [Concomitant]
  18. SEPTRA DS [Concomitant]
  19. LASIX [Concomitant]
  20. ASPIRIN [Concomitant]
  21. COMBIVENT [Concomitant]
  22. OSCAL (CALCIUM CARBONATE) [Concomitant]
  23. ELAVIL [Concomitant]
  24. EPIVIR [Concomitant]

REACTIONS (2)
  - FALL [None]
  - HIP FRACTURE [None]
